FAERS Safety Report 8517805-8 (Version None)
Quarter: 2012Q3

REPORT INFORMATION
  Report Type: 
  Country: None (occurrence: None)
  Receive Date: 20120718
  Receipt Date: 20120710
  Transmission Date: 20120928
  Serious: Yes (Hospitalization, Other)
  Sender: FDA-Public Use
  Company Number: US-ASTRAZENECA-2012SE48005

PATIENT
  Age: 30 Year
  Sex: Male

DRUGS (2)
  1. SEROQUEL XR [Suspect]
     Route: 048
  2. SEROQUEL XR [Suspect]
     Indication: AFFECTIVE DISORDER
     Route: 048

REACTIONS (8)
  - DRUG PRESCRIBING ERROR [None]
  - HEAD INJURY [None]
  - GUN SHOT WOUND [None]
  - JAW FRACTURE [None]
  - UPPER LIMB FRACTURE [None]
  - AFFECTIVE DISORDER [None]
  - SUBDURAL HAEMATOMA [None]
  - LOWER LIMB FRACTURE [None]
